FAERS Safety Report 4600573-X (Version None)
Quarter: 2005Q1

REPORT INFORMATION
  Report Type: 
  Country: None (occurrence: None)
  Receive Date: 20050304
  Receipt Date: 20050223
  Transmission Date: 20050727
  Serious: Yes (Life-Threatening, Hospitalization)
  Sender: FDA-Public Use
  Company Number: 2002000251-FJ

PATIENT
  Age: 58 Year
  Sex: Male
  Weight: 52 kg

DRUGS (7)
  1. TACROLIMUS CAPSULES (TACROLIMUS CAPSULES) CAPSULE [Suspect]
     Indication: RENAL TRANSPLANT
     Dosage: 3.00 MG, ORAL; 10.00 MG, ORAL; ORAL; 2.00 MG, ORAL; 1.00 MG, ORAL
     Route: 048
     Dates: start: 20000208, end: 20010125
  2. TACROLIMUS CAPSULES (TACROLIMUS CAPSULES) CAPSULE [Suspect]
     Indication: RENAL TRANSPLANT
     Dosage: 3.00 MG, ORAL; 10.00 MG, ORAL; ORAL; 2.00 MG, ORAL; 1.00 MG, ORAL
     Route: 048
     Dates: start: 20010125, end: 20011019
  3. TACROLIMUS CAPSULES (TACROLIMUS CAPSULES) CAPSULE [Suspect]
     Indication: RENAL TRANSPLANT
     Dosage: 3.00 MG, ORAL; 10.00 MG, ORAL; ORAL; 2.00 MG, ORAL; 1.00 MG, ORAL
     Route: 048
     Dates: start: 20011010, end: 20011212
  4. TACROLIMUS CAPSULES (TACROLIMUS CAPSULES) CAPSULE [Suspect]
     Indication: RENAL TRANSPLANT
     Dosage: 3.00 MG, ORAL; 10.00 MG, ORAL; ORAL; 2.00 MG, ORAL; 1.00 MG, ORAL
     Route: 048
     Dates: start: 20011213, end: 20020116
  5. TACROLIMUS CAPSULES (TACROLIMUS CAPSULES) CAPSULE [Suspect]
     Indication: RENAL TRANSPLANT
     Dosage: 3.00 MG, ORAL; 10.00 MG, ORAL; ORAL; 2.00 MG, ORAL; 1.00 MG, ORAL
     Route: 048
     Dates: start: 20020117
  6. MIZORIBINE (MIZORIBINE) TABLET [Suspect]
     Dosage: 125 MG, ORAL
     Route: 048
     Dates: start: 20000208
  7. PREDNISOLONE [Concomitant]

REACTIONS (10)
  - ATROPHY [None]
  - CAPILLARY DISORDER [None]
  - DRUG LEVEL INCREASED [None]
  - DUODENAL POLYP [None]
  - GASTRIC POLYPS [None]
  - HAEMANGIOMA [None]
  - HERPES VIRUS INFECTION [None]
  - KAPOSI'S SARCOMA [None]
  - KIDNEY TRANSPLANT REJECTION [None]
  - TUMOUR MARKER INCREASED [None]
